FAERS Safety Report 25283808 (Version 1)
Quarter: 2025Q2

REPORT INFORMATION
  Report Type: Spontaneous
  Country: US (occurrence: None)
  Receive Date: 20250505
  Receipt Date: 20250505
  Transmission Date: 20250716
  Serious: Yes (Other)
  Sender: FDA-CTU
  Company Number: None

PATIENT
  Age: 19 Year
  Sex: Female
  Weight: 44.0 kg

DRUGS (4)
  1. NEXPLANON [Suspect]
     Active Substance: ETONOGESTREL
  2. IBUPROFEN [Concomitant]
     Active Substance: IBUPROFEN
  3. hydracodine/acedametaphine [Concomitant]
  4. IRON [Concomitant]
     Active Substance: IRON

REACTIONS (2)
  - Abdominal pain [None]
  - Pleurisy [None]

NARRATIVE: CASE EVENT DATE: 20250414
